FAERS Safety Report 7693717-7 (Version None)
Quarter: 2011Q3

REPORT INFORMATION
  Report Type: 
  Country: None (occurrence: None)
  Receive Date: 20110819
  Receipt Date: 20110809
  Transmission Date: 20111222
  Serious: Yes (Hospitalization)
  Sender: FDA-Public Use
  Company Number: US-JNJFOC-20110805226

PATIENT
  Sex: Female
  Weight: 46 kg

DRUGS (2)
  1. INFLIXIMAB, RECOMBINANT [Suspect]
     Indication: CROHN'S DISEASE
     Route: 042
     Dates: start: 20040729
  2. INFLIXIMAB, RECOMBINANT [Suspect]
     Route: 042
     Dates: start: 20051104

REACTIONS (5)
  - CROHN'S DISEASE [None]
  - WOUND INFECTION [None]
  - VOMITING [None]
  - DEHYDRATION [None]
  - ABDOMINAL PAIN [None]
